FAERS Safety Report 10732495 (Version 1)
Quarter: 2015Q1

REPORT INFORMATION
  Report Type: Spontaneous
  Country: US (occurrence: None)
  Receive Date: 20150120
  Receipt Date: 20150120
  Transmission Date: 20150721
  Serious: Yes (Death)
  Sender: FDA-Public Use
  Company Number: 2015010119

PATIENT
  Age: 50 Year
  Sex: Female

DRUGS (4)
  1. CARISOPRODOL. [Suspect]
     Active Substance: CARISOPRODOL
  2. CLONAZEPAM (CLONAZEPAM) [Suspect]
     Active Substance: CLONAZEPAM
  3. MORPHINE [Suspect]
     Active Substance: MORPHINE
  4. HYDROCODONE BITARTRATE AND ACETAMINOPHEN [Suspect]
     Active Substance: ACETAMINOPHEN\HYDROCODONE BITARTRATE

REACTIONS (4)
  - Exposure via ingestion [None]
  - Completed suicide [None]
  - Cardiac arrest [None]
  - Respiratory arrest [None]

NARRATIVE: CASE EVENT DATE: 2013
